FAERS Safety Report 8322191-2 (Version None)
Quarter: 2012Q2

REPORT INFORMATION
  Report Type: 
  Country: None (occurrence: None)
  Receive Date: 20120430
  Receipt Date: 20111007
  Transmission Date: 20120825
  Serious: No
  Sender: FDA-Public Use
  Company Number: US-COVIDIEN/TYCO HEALTHCARE/MALLINCKRODT-T201101798

PATIENT
  Sex: Male

DRUGS (3)
  1. HYDROCODONE BITARTRATE + ACETAMINOPHEN [Suspect]
     Indication: BACK PAIN
     Dosage: 3 TABLETS, QD
     Dates: start: 20110808
  2. ROBAXIN [Concomitant]
     Dosage: UNK
     Route: 048
     Dates: start: 20080101
  3. ARTHROTEC [Concomitant]
     Dosage: UNK
     Route: 048
     Dates: start: 20080101

REACTIONS (2)
  - INTENTIONAL DRUG MISUSE [None]
  - PAIN [None]
